FAERS Safety Report 10126278 (Version 2)
Quarter: 2015Q1

REPORT INFORMATION
  Report Type: Other
  Country: US (occurrence: US)
  Receive Date: 20140427
  Receipt Date: 20150302
  Transmission Date: 20150720
  Serious: Yes (Hospitalization, Other)
  Sender: FDA-Public Use
  Company Number: US-GSKPPD-2014GSK030668

PATIENT

DRUGS (7)
  1. COREG [Concomitant]
     Active Substance: CARVEDILOL
     Route: 048
  2. NITROGLYCERIN. [Concomitant]
     Active Substance: NITROGLYCERIN
     Route: 060
  3. LASIX [Concomitant]
     Active Substance: FUROSEMIDE
     Route: 048
  4. ASPIRIN. [Concomitant]
     Active Substance: ASPIRIN
     Route: 048
  5. AVANDIA [Suspect]
     Active Substance: ROSIGLITAZONE MALEATE
     Indication: DIABETES MELLITUS
     Dosage: DATES OF AVANDIA USE COULD NOT BE CONFIRMED IN RECORDS REVIEWED.
     Route: 048
  6. PLAVIX [Concomitant]
     Active Substance: CLOPIDOGREL BISULFATE
     Route: 048
  7. NORVASC [Concomitant]
     Active Substance: AMLODIPINE BESYLATE
     Route: 048

REACTIONS (2)
  - Coronary arterial stent insertion [Unknown]
  - Cardiomyopathy [Recovered/Resolved]

NARRATIVE: CASE EVENT DATE: 2004
